FAERS Safety Report 4396846-9 (Version None)
Quarter: 2004Q3

REPORT INFORMATION
  Report Type: 
  Country: None (occurrence: None)
  Receive Date: 20040703
  Receipt Date: 20040703
  Transmission Date: 20050211
  Serious: Yes (Disabling, Other)
  Sender: FDA-Public Use
  Company Number: None

PATIENT
  Age: 60 Year
  Sex: Female
  Weight: 61.2356 kg

DRUGS (1)
  1. OXYTROL [Suspect]
     Indication: BLADDER DISORDER
     Dosage: 3.9 MG /24 HR
     Dates: start: 20040421

REACTIONS (7)
  - AMNESIA [None]
  - BACK PAIN [None]
  - DIFFICULTY IN WALKING [None]
  - DIZZINESS [None]
  - EYE SWELLING [None]
  - HEADACHE [None]
  - SWELLING FACE [None]
